FAERS Safety Report 13689407 (Version 1)
Quarter: 2017Q2

REPORT INFORMATION
  Report Type: Spontaneous
  Country: US (occurrence: US)
  Receive Date: 20170625
  Receipt Date: 20170625
  Transmission Date: 20170830
  Serious: Yes (Hospitalization, Disabling, Other)
  Sender: FDA-Public Use
  Company Number: None

PATIENT
  Age: 49 Year
  Sex: Female
  Weight: 74.25 kg

DRUGS (3)
  1. ATIVAN [Suspect]
     Active Substance: LORAZEPAM
     Indication: ANXIETY
  2. CLONOPIN [Suspect]
     Active Substance: CLONAZEPAM
  3. VALIUM [Suspect]
     Active Substance: DIAZEPAM

REACTIONS (9)
  - Feeding disorder [None]
  - Insomnia [None]
  - Fear [None]
  - Withdrawal syndrome [None]
  - Libido decreased [None]
  - Therapy cessation [None]
  - Anxiety [None]
  - Suicidal ideation [None]
  - Depression [None]

NARRATIVE: CASE EVENT DATE: 20160101
